FAERS Safety Report 5259032-6 (Version None)
Quarter: 2007Q1

REPORT INFORMATION
  Report Type: 
  Country: None (occurrence: None)
  Receive Date: 20070308
  Receipt Date: 20070222
  Transmission Date: 20070707
  Serious: Yes (Hospitalization)
  Sender: FDA-Public Use
  Company Number: FRWYE759723FEB07

PATIENT
  Age: 73 Year
  Sex: Female

DRUGS (3)
  1. ENBREL [Suspect]
     Indication: RHEUMATOID ARTHRITIS
     Route: 058
     Dates: start: 20050508, end: 20070126
  2. DIPROSTENE [Suspect]
     Indication: SCIATICA
     Dosage: ONE INJECTION
     Dates: start: 20070101, end: 20070101
  3. NOVATREX [Suspect]
     Indication: RHEUMATOID ARTHRITIS
     Route: 048
     Dates: start: 19960101

REACTIONS (3)
  - HERPES ZOSTER DISSEMINATED [None]
  - HERPES ZOSTER MULTI-DERMATOMAL [None]
  - SCIATICA [None]
